FAERS Safety Report 5357392-9 (Version None)
Quarter: 2007Q2

REPORT INFORMATION
  Report Type: 
  Country: None (occurrence: None)
  Receive Date: 20070612
  Receipt Date: 20070612
  Transmission Date: 20071010
  Serious: Yes (Hospitalization)
  Sender: FDA-Public Use
  Company Number: None

PATIENT
  Sex: Male
  Weight: 90.3 kg

DRUGS (3)
  1. FLUDARABINE PHOSPHATE [Suspect]
     Indication: ACUTE MYELOID LEUKAEMIA
     Dosage: 63 MG DAILY IV DRIP
     Route: 041
     Dates: start: 20061101, end: 20061105
  2. MELPHALAN [Suspect]
     Indication: ACUTE MYELOID LEUKAEMIA
     Dosage: 294 MG ONCE IV DRIP
     Route: 041
     Dates: start: 20061106, end: 20061106
  3. CAMPATH [Concomitant]

REACTIONS (7)
  - CARDIAC FAILURE CONGESTIVE [None]
  - DYSPNOEA EXERTIONAL [None]
  - FLUID OVERLOAD [None]
  - HYPERTENSION [None]
  - HYPOXIA [None]
  - IRON OVERLOAD [None]
  - PERICARDIAL EFFUSION [None]
